FAERS Safety Report 15749235 (Version 1)
Quarter: 2018Q4

REPORT INFORMATION
  Report Type: Spontaneous
  Country: US (occurrence: US)
  Receive Date: 20181220
  Receipt Date: 20181220
  Transmission Date: 20190205
  Serious: Yes (Other)
  Sender: FDA-Public Use
  Company Number: None

PATIENT
  Age: 65 Year
  Sex: Female
  Weight: 81 kg

DRUGS (5)
  1. LEVAQUIN [Suspect]
     Active Substance: LEVOFLOXACIN
     Indication: BACTERIAL INFECTION
  2. LISINOPRIL. [Concomitant]
     Active Substance: LISINOPRIL
  3. MVI [Concomitant]
     Active Substance: VITAMINS
  4. STATIN [Concomitant]
     Active Substance: UNSPECIFIED INGREDIENT
  5. METFORMIN [Concomitant]
     Active Substance: METFORMIN HYDROCHLORIDE

REACTIONS (2)
  - Musculoskeletal disorder [None]
  - Stiff leg syndrome [None]

NARRATIVE: CASE EVENT DATE: 20080710
